FAERS Safety Report 15988788 (Version 3)
Quarter: 2020Q3

REPORT INFORMATION
  Report Type: Report from Study
  Country: US (occurrence: US)
  Receive Date: 20190221
  Receipt Date: 20200704
  Transmission Date: 20201102
  Serious: Yes (Hospitalization, Other)
  Sender: FDA-Public Use
  Company Number: US-ROCHE-2223772

PATIENT
  Age: 79 Year
  Sex: Male
  Weight: 81.6 kg

DRUGS (4)
  1. TRASTUZUMAB. [Suspect]
     Active Substance: TRASTUZUMAB
     Indication: NEOPLASM MALIGNANT
     Dosage: ON 20/NOV/2018, MOST RECENT DOSE ADMINISTERD.?LOADING DOSE.
     Route: 042
     Dates: start: 20181120, end: 20181120
  2. PERTUZUMAB. [Suspect]
     Active Substance: PERTUZUMAB
     Dosage: MAINTENANCE DOSE.
     Route: 042
  3. TRASTUZUMAB. [Suspect]
     Active Substance: TRASTUZUMAB
     Dosage: MAINTENANCE DOSE.
     Route: 042
  4. PERTUZUMAB. [Suspect]
     Active Substance: PERTUZUMAB
     Indication: NEOPLASM MALIGNANT
     Dosage: ON 20/NOV/2018, MOST RECENT DOSE ADMINISTERD.?LOADING DOSE
     Route: 042
     Dates: start: 20181120, end: 20181120

REACTIONS (5)
  - Diarrhoea [Recovered/Resolved]
  - Ascites [Recovering/Resolving]
  - Acute kidney injury [Recovering/Resolving]
  - Blood creatinine increased [Recovering/Resolving]
  - Blood alkaline phosphatase increased [Recovering/Resolving]

NARRATIVE: CASE EVENT DATE: 20181122
